FAERS Safety Report 6002252-3 (Version None)
Quarter: 2008Q4

REPORT INFORMATION
  Report Type: 
  Country: None (occurrence: None)
  Receive Date: 20081215
  Receipt Date: 20071128
  Transmission Date: 20090506
  Serious: No
  Sender: FDA-Public Use
  Company Number: US-AMGEN-KDL253199

PATIENT
  Sex: Female

DRUGS (4)
  1. ENBREL [Suspect]
     Indication: PSORIASIS
     Route: 058
     Dates: start: 20070831
  2. ENBREL [Suspect]
     Indication: PSORIATIC ARTHROPATHY
  3. IBUPROFEN [Concomitant]
  4. PROZAC [Concomitant]

REACTIONS (4)
  - DRUG INEFFECTIVE [None]
  - GENITAL HERPES [None]
  - PSORIASIS [None]
  - STRESS [None]
